FAERS Safety Report 4700715-1 (Version None)
Quarter: 2005Q2

REPORT INFORMATION
  Report Type: 
  Country: None (occurrence: None)
  Receive Date: 20050627
  Receipt Date: 20050616
  Transmission Date: 20051028
  Serious: Yes (Hospitalization, Disabling)
  Sender: FDA-Public Use
  Company Number: 2005FR-00028

PATIENT
  Age: 75 Year
  Sex: Male

DRUGS (5)
  1. ASPIRIN [Suspect]
     Indication: MYOCARDIAL ISCHAEMIA
     Dosage: 75MG,ONCE DAILY, ORAL
     Route: 048
     Dates: end: 20050519
  2. CLOPIDOGREL BISULFATE [Concomitant]
  3. DICLOFENAC SODIUM [Concomitant]
  4. DOXAZOSIN [Concomitant]
  5. SALBUTAMOL [Concomitant]

REACTIONS (5)
  - ANAEMIA [None]
  - DIZZINESS [None]
  - GASTRIC ULCER [None]
  - MELAENA [None]
  - THROMBOSIS [None]
